FAERS Safety Report 9171729 (Version 1)
Quarter: 2013Q1

REPORT INFORMATION
  Report Type: Spontaneous
  Country: US (occurrence: US)
  Receive Date: 20130319
  Receipt Date: 20130319
  Transmission Date: 20140127
  Serious: Yes (Hospitalization)
  Sender: FDA-Public Use
  Company Number: PHEH2013US005930

PATIENT
  Sex: Female

DRUGS (6)
  1. TASIGNA [Suspect]
     Indication: CHRONIC MYELOID LEUKAEMIA
     Dosage: 200 MG, BID
     Route: 048
     Dates: start: 20121019
  2. DIGOXIN [Concomitant]
  3. SYNTHROID [Concomitant]
  4. LASIX [Concomitant]
  5. PREVACID [Concomitant]
  6. COUMADINE [Concomitant]

REACTIONS (2)
  - Escherichia infection [Unknown]
  - Vomiting [Unknown]
